FAERS Safety Report 4710602-0 (Version None)
Quarter: 2005Q3

REPORT INFORMATION
  Report Type: 
  Country: None (occurrence: None)
  Receive Date: 20050707
  Receipt Date: 20050620
  Transmission Date: 20060218
  Serious: Yes (Hospitalization, Other)
  Sender: FDA-Public Use
  Company Number: JP_050406421

PATIENT
  Sex: Female

DRUGS (6)
  1. EVISTA [Suspect]
     Indication: OSTEOPOROSIS POSTMENOPAUSAL
     Dosage: 60 MG/1 DAY
     Dates: start: 20050318, end: 20050419
  2. GLAKAY (MENATETRENONE) [Concomitant]
  3. MECOBALAMIN [Concomitant]
  4. JUVELA NICOTINATE (TOCOPHERYL NICOTINATE) [Concomitant]
  5. LENDORM [Concomitant]
  6. CYANOCOBALAMIN [Concomitant]

REACTIONS (1)
  - PANCYTOPENIA [None]
